FAERS Safety Report 5011308-3 (Version None)
Quarter: 2006Q2

REPORT INFORMATION
  Report Type: 
  Country: None (occurrence: None)
  Receive Date: 20060525
  Receipt Date: 20060518
  Transmission Date: 20061013
  Serious: Yes (Other)
  Sender: FDA-Public Use
  Company Number: DE-BOEHRINGER INGELHEIM PHARMACEUTICALS, INC.-2006-DE-02557GD

PATIENT
  Age: 5 Day
  Sex: Male

DRUGS (4)
  1. ZIDOVUDINE [Suspect]
     Indication: PROPHYLAXIS
     Route: 042
  2. ZIDOVUDINE [Suspect]
     Indication: HUMAN IMMUNODEFICIENCY VIRUS TRANSMISSION
     Route: 015
  3. NEVIRAPINE [Suspect]
     Route: 015
  4. LAMIVUDINE [Suspect]
     Route: 015

REACTIONS (11)
  - ANAEMIA [None]
  - DRUG EXPOSURE DURING PREGNANCY [None]
  - GRANULOCYTOPENIA [None]
  - HAEMATOCHEZIA [None]
  - HYPOTONIA [None]
  - INTERLEUKIN LEVEL INCREASED [None]
  - NECROTISING ENTEROCOLITIS NEONATAL [None]
  - PALLOR [None]
  - PNEUMATOSIS INTESTINALIS [None]
  - PNEUMOPERITONEUM [None]
  - SEPSIS NEONATAL [None]
